FAERS Safety Report 8865370 (Version 2)
Quarter: 2013Q3

REPORT INFORMATION
  Report Type: Spontaneous
  Country: US (occurrence: US)
  Receive Date: 20121024
  Receipt Date: 20130930
  Transmission Date: 20140515
  Serious: No
  Sender: FDA-Public Use
  Company Number: US-AMGEN-USASP2012002655

PATIENT
  Age: 80 Year
  Sex: Female
  Weight: 87.08 kg

DRUGS (1)
  1. ENBREL [Suspect]
     Indication: PSORIASIS
     Dosage: 25 MG, QWK
     Route: 058
     Dates: start: 20111226

REACTIONS (5)
  - Pruritus [Unknown]
  - Rash [Unknown]
  - Pruritus generalised [Unknown]
  - Drug hypersensitivity [Recovered/Resolved]
  - Injection site pain [Unknown]
